FAERS Safety Report 22969912 (Version 2)
Quarter: 2023Q4

REPORT INFORMATION
  Report Type: Report from Study
  Country: CA (occurrence: CA)
  Receive Date: 20230922
  Receipt Date: 20231004
  Transmission Date: 20240110
  Serious: No
  Sender: FDA-Public Use
  Company Number: CA-KOREA IPSEN Pharma-2023-22124

PATIENT
  Age: 70 Year
  Sex: Female

DRUGS (8)
  1. LANREOTIDE ACETATE [Suspect]
     Active Substance: LANREOTIDE ACETATE
     Indication: Carcinoid syndrome
     Dosage: 120 MG Q 4 WEEKS
     Route: 058
     Dates: start: 20230629
  2. LORAZEPAM [Concomitant]
     Active Substance: LORAZEPAM
     Dosage: PRN
  3. ATORVASTATIN [Concomitant]
     Active Substance: ATORVASTATIN
  4. VITAMIN D [Concomitant]
     Active Substance: VITAMIN D NOS
  5. BUPROPION [Concomitant]
     Active Substance: BUPROPION
  6. PAROXETINE [Concomitant]
     Active Substance: PAROXETINE
  7. PREMARIN [Concomitant]
     Active Substance: ESTROGENS, CONJUGATED
  8. CALCIUM [Concomitant]
     Active Substance: CALCIUM

REACTIONS (2)
  - Diarrhoea [Not Recovered/Not Resolved]
  - Off label use [Unknown]

NARRATIVE: CASE EVENT DATE: 20230901
